FAERS Safety Report 13898366 (Version 2)
Quarter: 2017Q3

REPORT INFORMATION
  Report Type: Spontaneous
  Country: IT (occurrence: IT)
  Receive Date: 20170823
  Receipt Date: 20170907
  Transmission Date: 20171127
  Serious: Yes (Other)
  Sender: FDA-Public Use
  Company Number: IT-BAYER-2017-156232

PATIENT
  Age: 62 Year
  Sex: Male

DRUGS (2)
  1. REGORAFENIB [Suspect]
     Active Substance: REGORAFENIB
     Indication: GASTROINTESTINAL STROMAL CANCER
     Dosage: 120 MG/DAY (21 DAYS ON, 7 DAYS OFF SCHEDULE)
  2. REGORAFENIB [Suspect]
     Active Substance: REGORAFENIB
     Indication: GASTROINTESTINAL STROMAL CANCER
     Dosage: 160 MG/DAY(21 DAYS ON, 7 DAYS OFF).
     Dates: start: 201205

REACTIONS (5)
  - Fatigue [Recovered/Resolved]
  - Therapeutic response unexpected [None]
  - Palmar-plantar erythrodysaesthesia syndrome [Recovered/Resolved]
  - Pain [None]
  - Hiccups [None]

NARRATIVE: CASE EVENT DATE: 201212
